FAERS Safety Report 19406492 (Version 1)
Quarter: 2021Q2

REPORT INFORMATION
  Report Type: Spontaneous
  Country: FR (occurrence: FR)
  Receive Date: 20210611
  Receipt Date: 20210611
  Transmission Date: 20210717
  Serious: Yes (Other)
  Sender: FDA-Public Use
  Company Number: NVSC2021FR129633

PATIENT
  Sex: Female

DRUGS (2)
  1. TASIGNA [Suspect]
     Active Substance: NILOTINIB
     Indication: PRODUCT USED FOR UNKNOWN INDICATION
     Dosage: 400 MG (2 DOSES)
     Route: 065
     Dates: start: 202006
  2. TASIGNA [Suspect]
     Active Substance: NILOTINIB
     Dosage: 300 MG (2 DOSES)
     Route: 065

REACTIONS (1)
  - Cell death [Unknown]
